FAERS Safety Report 5226552-X (Version None)
Quarter: 2007Q1

REPORT INFORMATION
  Report Type: 
  Country: None (occurrence: None)
  Receive Date: 20070201
  Receipt Date: 20070126
  Transmission Date: 20070707
  Serious: Yes (Other)
  Sender: FDA-Public Use
  Company Number: JP-SANOFI-SYNTHELABO-A01200611276

PATIENT
  Age: 33 Year
  Sex: Male

DRUGS (27)
  1. GASMOTIN [Concomitant]
     Indication: GASTRITIS
     Route: 048
     Dates: start: 20061223, end: 20061223
  2. GASMOTIN [Concomitant]
     Indication: SUICIDE ATTEMPT
     Route: 048
     Dates: start: 20061223, end: 20061223
  3. GASMOTIN [Concomitant]
     Route: 048
     Dates: start: 20061225
  4. GASMOTIN [Concomitant]
     Route: 048
     Dates: start: 20061225
  5. GASMOTIN [Concomitant]
     Dosage: 15 MG
     Route: 048
     Dates: start: 20061129
  6. GASMOTIN [Concomitant]
     Dosage: 15 MG
     Route: 048
     Dates: start: 20061129
  7. GOODMIN [Concomitant]
     Indication: INSOMNIA
     Dosage: 1 UNIT
     Route: 048
     Dates: start: 20060520, end: 20060729
  8. GOODMIN [Concomitant]
     Dosage: 1 DF
     Route: 048
     Dates: start: 20061027
  9. MEILAX [Concomitant]
     Indication: DRUG USE FOR UNKNOWN INDICATION
     Dosage: 1 MG
     Route: 048
     Dates: start: 20060520, end: 20060729
  10. MEILAX [Concomitant]
     Dosage: 1 MG
     Route: 048
     Dates: start: 20061027
  11. LUVOX [Suspect]
     Indication: SUICIDE ATTEMPT
     Route: 048
     Dates: start: 20061223, end: 20061223
  12. LUVOX [Suspect]
     Indication: DEPRESSION
     Route: 048
     Dates: start: 20061223, end: 20061223
  13. LUVOX [Suspect]
     Route: 048
     Dates: start: 20061225, end: 20061225
  14. LUVOX [Suspect]
     Route: 048
     Dates: start: 20061225, end: 20061225
  15. LUVOX [Suspect]
     Dosage: 50 MG
     Route: 048
     Dates: start: 20060513, end: 20060605
  16. LUVOX [Suspect]
     Dosage: 50 MG
     Route: 048
     Dates: start: 20060513, end: 20060605
  17. LUVOX [Suspect]
     Dosage: 100 MG
     Route: 048
     Dates: start: 20060606, end: 20061026
  18. LUVOX [Suspect]
     Dosage: 100 MG
     Route: 048
     Dates: start: 20060606, end: 20061026
  19. LUVOX [Suspect]
     Dosage: 150 MG
     Route: 048
     Dates: start: 20061129, end: 20061226
  20. LUVOX [Suspect]
     Dosage: 150 MG
     Route: 048
     Dates: start: 20061129, end: 20061226
  21. HALCION [Concomitant]
     Indication: INSOMNIA
     Dosage: 0.25 MG
     Route: 048
     Dates: start: 20060513, end: 20060519
  22. MYSLEE [Suspect]
     Indication: SUICIDE ATTEMPT
     Route: 048
     Dates: start: 20061223, end: 20061223
  23. MYSLEE [Suspect]
     Indication: INSOMNIA
     Route: 048
     Dates: start: 20061223, end: 20061223
  24. MYSLEE [Suspect]
     Route: 048
     Dates: start: 20061225, end: 20061225
  25. MYSLEE [Suspect]
     Route: 048
     Dates: start: 20061225, end: 20061225
  26. MYSLEE [Suspect]
     Route: 048
     Dates: start: 20061129
  27. MYSLEE [Suspect]
     Route: 048
     Dates: start: 20061129

REACTIONS (3)
  - CONVULSION [None]
  - DEPRESSED LEVEL OF CONSCIOUSNESS [None]
  - MULTIPLE DRUG OVERDOSE INTENTIONAL [None]
